FAERS Safety Report 23652067 (Version 3)
Quarter: 2024Q2

REPORT INFORMATION
  Report Type: Spontaneous
  Country: US (occurrence: US)
  Receive Date: 20240320
  Receipt Date: 20240402
  Transmission Date: 20240716
  Serious: Yes (Hospitalization)
  Sender: FDA-Public Use
  Company Number: US-EIGER BIOPHARMACEUTICALS-EIG-2024-000005

PATIENT
  Age: 21 Year
  Sex: Female

DRUGS (1)
  1. LONAFARNIB [Suspect]
     Active Substance: LONAFARNIB
     Indication: Endocrine disorder
     Dosage: 50 MILLIGRAM, BID
     Route: 048
     Dates: start: 20220204

REACTIONS (2)
  - Cardiac operation [Recovering/Resolving]
  - Off label use [Unknown]

NARRATIVE: CASE EVENT DATE: 20220204
